FAERS Safety Report 24439151 (Version 1)
Quarter: 2024Q4

REPORT INFORMATION
  Report Type: Spontaneous
  Country: RS (occurrence: RS)
  Receive Date: 20241015
  Receipt Date: 20241015
  Transmission Date: 20250115
  Serious: Yes (Hospitalization)
  Sender: ORGANON
  Company Number: RS-ORGANON-O2409SRB001115

PATIENT
  Age: 3 Year
  Sex: Male

DRUGS (4)
  1. MONTELUKAST SODIUM [Suspect]
     Active Substance: MONTELUKAST SODIUM
     Indication: Bronchial obstruction
     Dosage: UNK
  2. MONTELUKAST SODIUM [Suspect]
     Active Substance: MONTELUKAST SODIUM
     Indication: Rhinitis allergic
  3. BUDESONIDE [Suspect]
     Active Substance: BUDESONIDE
     Indication: Bronchial obstruction
     Dosage: UNK
  4. BUDESONIDE [Suspect]
     Active Substance: BUDESONIDE
     Indication: Rhinitis allergic

REACTIONS (1)
  - Therapeutic product effect incomplete [Unknown]
